FAERS Safety Report 19565707 (Version 2)
Quarter: 2021Q3

REPORT INFORMATION
  Report Type: Spontaneous
  Country: US (occurrence: US)
  Receive Date: 20210714
  Receipt Date: 20210914
  Transmission Date: 20211014
  Serious: Yes (Other)
  Sender: FDA-Public Use
  Company Number: NVSC2021US153448

PATIENT
  Age: 30 Year
  Sex: Female

DRUGS (10)
  1. ACICLOVIR [Suspect]
     Active Substance: ACYCLOVIR
     Indication: HERPES SIMPLEX
     Dosage: 10 MG/KG, Q8H
     Route: 042
  2. MISOPROSTOL. [Suspect]
     Active Substance: MISOPROSTOL
     Indication: LABOUR INDUCTION
     Dosage: UNK AT A HIGH DOSE DURING 27 WEEKS 1 DAY OF GESTATION
     Route: 065
  3. NITROFURANTOIN. [Suspect]
     Active Substance: NITROFURANTOIN
     Indication: DYSURIA
     Dosage: UNK AT 25 1/7 WEEKS
     Route: 065
  4. AZITHROMYCIN ANHYDROUS. [Suspect]
     Active Substance: AZITHROMYCIN ANHYDROUS
     Indication: PNEUMONIA
     Dosage: UNK AT 25 5/7 WEEKS
     Route: 065
  5. AZITHROMYCIN ANHYDROUS. [Suspect]
     Active Substance: AZITHROMYCIN ANHYDROUS
     Dosage: 500 MG, QD AT 26 2/7 WEEKS
     Route: 048
  6. NITROFURANTOIN. [Suspect]
     Active Substance: NITROFURANTOIN
     Indication: POLLAKIURIA
  7. PIPERACILLIN/TAZOBACTAM [Suspect]
     Active Substance: PIPERACILLIN SODIUM\TAZOBACTAM SODIUM
     Indication: PRODUCT USED FOR UNKNOWN INDICATION
     Dosage: UNK AT 26 1/7 WEEKS OF  GESTATION
     Route: 065
  8. MIFEPRISTONE [Suspect]
     Active Substance: MIFEPRISTONE
     Indication: LABOUR INDUCTION
     Dosage: UNK DURING 27 WEEKS 1 DAY OF GESTAION
     Route: 065
  9. ERTAPENEM. [Suspect]
     Active Substance: ERTAPENEM SODIUM
     Indication: AMNIOTIC CAVITY INFECTION
     Dosage: 1 G, QD AT 26 2/7 WEEKS
     Route: 042
  10. POTASSIUM CHLORIDE. [Suspect]
     Active Substance: POTASSIUM CHLORIDE
     Indication: FOETICIDE
     Dosage: UNK
     Route: 016

REACTIONS (2)
  - Maternal exposure during pregnancy [Unknown]
  - Stillbirth [Unknown]
